FAERS Safety Report 14157106 (Version 1)
Quarter: 2017Q4

REPORT INFORMATION
  Report Type: Report from Study
  Country: CA (occurrence: CA)
  Receive Date: 20171103
  Receipt Date: 20171103
  Transmission Date: 20180321
  Serious: Yes (Hospitalization)
  Sender: FDA-Public Use
  Company Number: CA-TAKEDA-2017TUS022422

PATIENT
  Age: 41 Year
  Sex: Female

DRUGS (4)
  1. PAROXETINE. [Concomitant]
     Active Substance: PAROXETINE
     Dosage: UNK
  2. PREDNISONE. [Concomitant]
     Active Substance: PREDNISONE
     Dosage: 40 MG, UNK
  3. VEDOLIZUMAB [Suspect]
     Active Substance: VEDOLIZUMAB
     Indication: CROHN^S DISEASE
     Dosage: 300 MG, UNK
     Route: 042
     Dates: start: 20171013
  4. VISANNE [Concomitant]
     Active Substance: DIENOGEST
     Dosage: UNK

REACTIONS (1)
  - Abdominal abscess [Unknown]
